FAERS Safety Report 4264792-7 (Version None)
Quarter: 2004Q1

REPORT INFORMATION
  Report Type: 
  Country: None (occurrence: None)
  Receive Date: 20040105
  Receipt Date: 20031229
  Transmission Date: 20041129
  Serious: Yes (Death, Hospitalization)
  Sender: FDA-Public Use
  Company Number: 2003188456US

PATIENT
  Age: 50 Year
  Sex: Male
  Weight: 83.4 kg

DRUGS (16)
  1. CAMPTOSAR [Suspect]
     Indication: GLIOBLASTOMA
     Dosage: 125 MG/M2, WEEKS 1,2,4, CYCLIC, IV
     Route: 042
     Dates: start: 20030929, end: 20031020
  2. KEFLEX [Concomitant]
  3. IMODIUM [Concomitant]
  4. DECADRON [Concomitant]
  5. SINGULAIR [Concomitant]
  6. ASPIRIN [Concomitant]
  7. CENTRUM (VITAMINS NOS) [Concomitant]
  8. VENTOLINE INHALATOR (SALBUTAMOL) [Concomitant]
  9. FLONASE [Concomitant]
  10. NEXIUM [Concomitant]
  11. ANZEMET (DOLASETRON MESILATE) [Concomitant]
  12. LOMOTIL [Concomitant]
  13. AMOXICILLIN TRIHYDRATE/CLAVULANATE POTASSIUM [Concomitant]
  14. PROPOXYPHENE HCL [Concomitant]
  15. GLUCOTROL [Concomitant]
  16. IRON [Concomitant]

REACTIONS (2)
  - LARGE INTESTINE PERFORATION [None]
  - SEPSIS [None]
